FAERS Safety Report 17660759 (Version 1)
Quarter: 2020Q2

REPORT INFORMATION
  Report Type: Spontaneous
  Country: US (occurrence: US)
  Receive Date: 20200413
  Receipt Date: 20200413
  Transmission Date: 20200713
  Serious: No
  Sender: FDA-Public Use
  Company Number: US-MYLANLABS-2020M1033687

PATIENT
  Sex: Female

DRUGS (3)
  1. TINNITUS 911 [Concomitant]
     Indication: TINNITUS
     Dosage: UNK
  2. COLD-EEZE (ZINC GLUCONATE) [Suspect]
     Active Substance: HOMEOPATHICS\ZINC GLUCONATE
     Indication: IMMUNE ENHANCEMENT THERAPY
     Dosage: UNK
     Route: 065
     Dates: start: 20200319, end: 202003
  3. METFORMIN [Suspect]
     Active Substance: METFORMIN HYDROCHLORIDE
     Indication: DIABETES MELLITUS MANAGEMENT
     Dosage: UNK
     Route: 048
     Dates: end: 202003

REACTIONS (1)
  - Diarrhoea [Not Recovered/Not Resolved]

NARRATIVE: CASE EVENT DATE: 20200319
